FAERS Safety Report 5326401-5 (Version None)
Quarter: 2007Q2

REPORT INFORMATION
  Report Type: 
  Country: None (occurrence: None)
  Receive Date: 20070516
  Receipt Date: 20070515
  Transmission Date: 20071010
  Serious: Yes (Death)
  Sender: FDA-Public Use
  Company Number: HQWYE864906APR07

PATIENT
  Sex: Male
  Weight: 98.97 kg

DRUGS (1)
  1. ADVIL [Suspect]
     Indication: MUSCULOSKELETAL PAIN
     Dosage: 3 LIQUIGELS AS NEEDED
     Route: 048
     Dates: end: 20070324

REACTIONS (1)
  - MYOCARDIAL INFARCTION [None]
